FAERS Safety Report 7811287-7 (Version None)
Quarter: 2011Q4

REPORT INFORMATION
  Report Type: 
  Country: None (occurrence: None)
  Receive Date: 20111013
  Receipt Date: 20111007
  Transmission Date: 20120403
  Serious: Yes (Death)
  Sender: FDA-Public Use
  Company Number: AU-SANOFI-AVENTIS-2011SA066051

PATIENT
  Age: 74 Year
  Sex: Female

DRUGS (4)
  1. CYCLOSPORINE [Concomitant]
  2. METHOTREXATE [Concomitant]
  3. PREDNISONE [Concomitant]
  4. ARAVA [Suspect]
     Route: 048
     Dates: start: 19991111

REACTIONS (1)
  - DEATH [None]
